FAERS Safety Report 4640702-5 (Version None)
Quarter: 2005Q2

REPORT INFORMATION
  Report Type: 
  Country: None (occurrence: None)
  Receive Date: 20050419
  Receipt Date: 20050407
  Transmission Date: 20051028
  Serious: Yes (Hospitalization)
  Sender: FDA-Public Use
  Company Number: 212396

PATIENT
  Age: 61 Year
  Sex: Female

DRUGS (5)
  1. MABTHERA (RITUXIMAB) CONC FOR SOLUTION FOR INFUSION, 100MG [Suspect]
     Dosage: SEE IMAGE
     Route: 042
  2. HUMIRA [Suspect]
     Dosage: SEE IMAGE
     Dates: start: 20030301, end: 20040101
  3. HUMIRA [Suspect]
     Dosage: SEE IMAGE
     Dates: start: 20040101, end: 20040201
  4. LEFLUNOMIDE [Suspect]
  5. RIFAMPICIN [Concomitant]

REACTIONS (5)
  - B-LYMPHOCYTE COUNT DECREASED [None]
  - BURSITIS [None]
  - HIP ARTHROPLASTY [None]
  - LUNG NEOPLASM [None]
  - THERAPY NON-RESPONDER [None]
